FAERS Safety Report 5878623-2 (Version None)
Quarter: 2008Q3

REPORT INFORMATION
  Report Type: 
  Country: None (occurrence: None)
  Receive Date: 20080909
  Receipt Date: 20080825
  Transmission Date: 20090109
  Serious: Yes (Disabling)
  Sender: FDA-Public Use
  Company Number: 2008AL009209

PATIENT
  Age: 66 Year
  Sex: Male

DRUGS (8)
  1. MIRTAZAPINE [Suspect]
     Indication: DEPRESSION
     Dosage: 30 MG; PO
     Route: 048
     Dates: start: 20061106, end: 20080201
  2. CIPRALEX [Concomitant]
  3. FLOXACILLIN SODIUM [Concomitant]
  4. CANDESARTAN CILEXETIL [Concomitant]
  5. CARBOCISTEINE [Concomitant]
  6. DOXYCYCLINE [Concomitant]
  7. LANSOPRAZOLE [Concomitant]
  8. BENDROFLUMETHIAZIDE [Concomitant]

REACTIONS (8)
  - ABNORMAL BEHAVIOUR [None]
  - AGGRESSION [None]
  - DIARRHOEA [None]
  - MANIA [None]
  - MOOD SWINGS [None]
  - NEGATIVISM [None]
  - SOCIAL PHOBIA [None]
  - UNEVALUABLE EVENT [None]
